FAERS Safety Report 23883733 (Version 1)
Quarter: 2024Q2

REPORT INFORMATION
  Report Type: Spontaneous
  Country: JP (occurrence: JP)
  Receive Date: 20240522
  Receipt Date: 20240522
  Transmission Date: 20240716
  Serious: Yes (Other)
  Sender: FDA-Public Use
  Company Number: JP-PHATHOM PHARMACEUTICALS INC.-2024PHT00316

PATIENT
  Age: 86 Year
  Sex: Male

DRUGS (4)
  1. VONOPRAZAN FUMARATE [Suspect]
     Active Substance: VONOPRAZAN FUMARATE
     Indication: Gastritis
     Dosage: UNK
     Route: 048
  2. LOXOPROFEN SODIUM [Concomitant]
     Active Substance: LOXOPROFEN SODIUM
  3. VIBEGRON [Concomitant]
     Active Substance: VIBEGRON
  4. AMLODIPINE BESYLATE [Concomitant]
     Active Substance: AMLODIPINE BESYLATE

REACTIONS (5)
  - Haematemesis [Recovered/Resolved]
  - Small intestinal haemorrhage [Unknown]
  - Duodenal ulcer [Unknown]
  - Nausea [Unknown]
  - Off label use [Unknown]
